FAERS Safety Report 4521069-X (Version None)
Quarter: 2004Q4

REPORT INFORMATION
  Report Type: 
  Country: None (occurrence: None)
  Receive Date: 20041203
  Receipt Date: 20041122
  Transmission Date: 20050328
  Serious: Yes (Hospitalization)
  Sender: FDA-Public Use
  Company Number: HQWYE641523NOV04

PATIENT
  Age: 33 Year
  Sex: Male

DRUGS (5)
  1. CORDARONE [Suspect]
     Dosage: 200 MG 1X PER 1 DAY ORAL
     Route: 048
     Dates: start: 20000101
  2. ASPEGIC 1000 [Suspect]
     Dosage: 250 MG 1X PER 1 DAY ORAL
     Route: 048
     Dates: start: 20000101
  3. ENALAPRIL (ENALAPRIL,) [Suspect]
     Dosage: ORAL
     Route: 048
     Dates: start: 20000101, end: 20040401
  4. ZYLORIC (ALLOPURINOL,) [Suspect]
     Dosage: 100 MG 1X PER 1 DAY ORAL
     Route: 048
     Dates: start: 20000101
  5. HYDREA [Concomitant]

REACTIONS (6)
  - ACUTE RESPIRATORY DISTRESS SYNDROME [None]
  - ASPERGILLOSIS [None]
  - HAEMOPTYSIS [None]
  - MYCOBACTERIAL INFECTION [None]
  - PNEUMONIA [None]
  - THROMBOCYTOPENIA [None]
